FAERS Safety Report 5102659-2 (Version None)
Quarter: 2006Q3

REPORT INFORMATION
  Report Type: 
  Country: None (occurrence: None)
  Receive Date: 20060907
  Receipt Date: 20060825
  Transmission Date: 20061208
  Serious: Yes (Hospitalization)
  Sender: FDA-Public Use
  Company Number: 2006091978

PATIENT
  Age: 59 Year
  Sex: Female
  Weight: 59.5 kg

DRUGS (1)
  1. SUTENT [Suspect]
     Indication: RENAL CELL CARCINOMA STAGE UNSPECIFIED
     Dosage: 37.5 MG (37.5 MG,1 IN 1 D),ORAL
     Route: 048
     Dates: start: 20060421

REACTIONS (2)
  - DYSURIA [None]
  - URINARY RETENTION [None]
